FAERS Safety Report 8042982-5 (Version None)
Quarter: 2012Q1

REPORT INFORMATION
  Report Type: 
  Country: None (occurrence: None)
  Receive Date: 20120112
  Receipt Date: 20120105
  Transmission Date: 20120608
  Serious: Yes (Hospitalization)
  Sender: FDA-Public Use
  Company Number: US-US-EMD SERONO, INC.-7057995

PATIENT
  Sex: Female
  Weight: 93 kg

DRUGS (3)
  1. SOLU-MEDROL [Concomitant]
  2. REBIF [Suspect]
     Indication: MULTIPLE SCLEROSIS
     Route: 058
     Dates: start: 20100501
  3. AMPYRA [Concomitant]

REACTIONS (12)
  - STAPHYLOCOCCAL INFECTION [None]
  - HYPOTENSION [None]
  - FATIGUE [None]
  - ROAD TRAFFIC ACCIDENT [None]
  - HYPERHIDROSIS [None]
  - INJECTION SITE PAIN [None]
  - INJECTION SITE HAEMATOMA [None]
  - HYPOKINESIA [None]
  - HYPOAESTHESIA [None]
  - COLITIS [None]
  - CYSTITIS [None]
  - CONTUSION [None]
